APPROVED DRUG PRODUCT: PROPOFOL
Active Ingredient: PROPOFOL
Strength: 10MG/ML
Dosage Form/Route: INJECTABLE;INJECTION
Application: A075102 | Product #001 | TE Code: AB
Applicant: SAGENT PHARMACEUTICALS INC
Approved: Jan 4, 1999 | RLD: No | RS: No | Type: RX